FAERS Safety Report 7205988-1 (Version None)
Quarter: 2011Q1

REPORT INFORMATION
  Report Type: 
  Country: None (occurrence: None)
  Receive Date: 20110103
  Receipt Date: 20101216
  Transmission Date: 20110831
  Serious: No
  Sender: FDA-Public Use
  Company Number: US-BIOGENIDEC-2010BI044998

PATIENT
  Sex: Male

DRUGS (5)
  1. EFFEXOR XR [Concomitant]
     Indication: DEPRESSION
  2. VIAGRA [Concomitant]
     Indication: ERECTILE DYSFUNCTION
     Route: 048
  3. EFFEXOR XR [Concomitant]
     Indication: ANXIETY
  4. TYSABRI [Suspect]
     Indication: MULTIPLE SCLEROSIS
     Route: 042
     Dates: start: 20080110
  5. DIAZEPAM [Concomitant]
     Indication: ANXIETY

REACTIONS (1)
  - TREMOR [None]
